FAERS Safety Report 9509068 (Version 1)
Quarter: 2013Q3

REPORT INFORMATION
  Report Type: Spontaneous
  Country: US (occurrence: US)
  Receive Date: 20130909
  Receipt Date: 20130909
  Transmission Date: 20140515
  Serious: No
  Sender: FDA-Public Use
  Company Number: US-BRISTOL-MYERS SQUIBB COMPANY-19055755

PATIENT
  Age: 39 Year
  Sex: Female
  Weight: 88.43 kg

DRUGS (2)
  1. ABILIFY [Suspect]
     Indication: DEPRESSION
     Dates: end: 2013
  2. EFFEXOR [Suspect]
     Indication: DEPRESSION

REACTIONS (1)
  - Weight increased [Unknown]
